APPROVED DRUG PRODUCT: CEFACLOR
Active Ingredient: CEFACLOR
Strength: EQ 250MG BASE
Dosage Form/Route: CAPSULE;ORAL
Application: A064081 | Product #001
Applicant: TEVA PHARMACEUTICALS USA INC
Approved: Sep 16, 1996 | RLD: No | RS: No | Type: DISCN